FAERS Safety Report 21268772 (Version 1)
Quarter: 2022Q3

REPORT INFORMATION
  Report Type: Spontaneous
  Country: FR (occurrence: FR)
  Receive Date: 20220830
  Receipt Date: 20220830
  Transmission Date: 20221027
  Serious: Yes (Hospitalization)
  Sender: FDA-Public Use
  Company Number: None

PATIENT
  Age: 41 Year
  Sex: Male
  Weight: 110 kg

DRUGS (5)
  1. PANTOPRAZOLE [Suspect]
     Active Substance: PANTOPRAZOLE
     Indication: Prophylaxis
     Dosage: 40 MG, QD
     Route: 042
     Dates: start: 20220619, end: 20220622
  2. PANTOPRAZOLE [Suspect]
     Active Substance: PANTOPRAZOLE
     Dosage: 40 MG, QD
     Route: 048
     Dates: start: 20220623, end: 20220626
  3. AZACTAM [Suspect]
     Active Substance: AZTREONAM
     Indication: Septic shock
     Dosage: 8 G, QD, (POUDRE ET SOLUTION POUR USAGE PARENTERAL)
     Route: 042
     Dates: start: 20220609, end: 20220625
  4. METRONIDAZOLE [Suspect]
     Active Substance: METRONIDAZOLE
     Indication: Septic shock
     Dosage: 1.5 G, QD
     Route: 042
     Dates: start: 20220619, end: 20220625
  5. LINEZOLID [Suspect]
     Active Substance: LINEZOLID
     Indication: Septic shock
     Dosage: 1.2 G, QD
     Route: 042
     Dates: start: 20220619, end: 20220626

REACTIONS (4)
  - Pyrexia [Recovered/Resolved]
  - Eosinophilia [Recovering/Resolving]
  - Rash maculo-papular [Recovered/Resolved]
  - Arthralgia [Recovered/Resolved]

NARRATIVE: CASE EVENT DATE: 20220629
